FAERS Safety Report 10404977 (Version 3)
Quarter: 2014Q3

REPORT INFORMATION
  Report Type: Report from Study
  Country: BR (occurrence: BR)
  Receive Date: 20140825
  Receipt Date: 20140909
  Transmission Date: 20150326
  Serious: Yes (Other)
  Sender: FDA-Public Use
  Company Number: BR-BIOGENIDEC-2014BI065105

PATIENT
  Age: 55 Year
  Sex: Female

DRUGS (7)
  1. AVONEX [Suspect]
     Active Substance: INTERFERON BETA-1A
     Indication: MULTIPLE SCLEROSIS
     Route: 030
     Dates: start: 20140623
  2. VERTIX [Concomitant]
     Indication: MEMORY IMPAIRMENT
  3. DIOVAN [Concomitant]
     Active Substance: VALSARTAN
     Indication: CARDIAC FAILURE
     Dates: start: 2008
  4. ESPRAN [Concomitant]
     Active Substance: ESCITALOPRAM OXALATE
     Indication: DEPRESSION
     Dates: start: 201403
  5. PREDNISONE. [Concomitant]
     Active Substance: PREDNISONE
  6. AVONEX [Suspect]
     Active Substance: INTERFERON BETA-1A
     Indication: MULTIPLE SCLEROSIS
     Route: 030
     Dates: start: 20071210, end: 20140513
  7. TYLENOL [Concomitant]
     Active Substance: ACETAMINOPHEN
     Indication: PREMEDICATION

REACTIONS (16)
  - Obesity [Not Recovered/Not Resolved]
  - Vascular pain [Unknown]
  - Confusional state [Unknown]
  - Dependent personality disorder [Unknown]
  - Influenza like illness [Recovered/Resolved]
  - Cerebellar tumour [Not Recovered/Not Resolved]
  - Pyrexia [Recovered/Resolved]
  - Injection site haemorrhage [Recovered/Resolved]
  - Tremor [Recovered/Resolved]
  - Feeling of despair [Unknown]
  - Therapy cessation [Unknown]
  - Depression [Not Recovered/Not Resolved]
  - Chills [Unknown]
  - Fatigue [Unknown]
  - Burning sensation [Unknown]
  - Injection site pain [Recovered/Resolved]

NARRATIVE: CASE EVENT DATE: 201406
